FAERS Safety Report 22133189 (Version 1)
Quarter: 2023Q1

REPORT INFORMATION
  Report Type: Report from Study
  Country: JP (occurrence: JP)
  Receive Date: 20230324
  Receipt Date: 20230324
  Transmission Date: 20230417
  Serious: Yes (Hospitalization, Other)
  Sender: FDA-Public Use
  Company Number: JP-SA-2023SA011583

PATIENT
  Age: 87 Year
  Sex: Female
  Weight: 35.6 kg

DRUGS (6)
  1. SARILUMAB [Suspect]
     Active Substance: SARILUMAB
     Indication: Rheumatoid arthritis
     Dosage: UNK UNK, QOW
     Route: 058
     Dates: start: 20220425, end: 20221112
  2. SARILUMAB [Suspect]
     Active Substance: SARILUMAB
     Dosage: UNK UNK, QOW
     Route: 058
     Dates: start: 20221223, end: 20230111
  3. AZULFIDINE EN-TABS [Concomitant]
     Active Substance: SULFASALAZINE
     Indication: Rheumatoid arthritis
     Dosage: 1 DF, BID
     Route: 065
     Dates: start: 20170501
  4. SULFASALAZINE [Concomitant]
     Active Substance: SULFASALAZINE
     Indication: Rheumatoid arthritis
     Dosage: 500 MG, QD
     Route: 048
     Dates: start: 20170501
  5. EVENITY [Concomitant]
     Active Substance: ROMOSOZUMAB-AQQG
     Indication: Osteoporosis
     Dosage: 105 MG, QM
     Route: 058
     Dates: start: 20221128, end: 20230110
  6. ELDECALCITOL [Concomitant]
     Active Substance: ELDECALCITOL
     Indication: Osteoporosis
     Dosage: 0.75 UG, QD
     Route: 048
     Dates: start: 20221126

REACTIONS (12)
  - Pleural effusion [Not Recovered/Not Resolved]
  - Cardiac failure congestive [Recovering/Resolving]
  - Oedema [Recovering/Resolving]
  - Dyspnoea [Recovering/Resolving]
  - Ulna fracture [Recovering/Resolving]
  - Joint swelling [Recovering/Resolving]
  - Arthralgia [Recovering/Resolving]
  - Fall [Unknown]
  - Osteoporosis [Not Recovered/Not Resolved]
  - Respiratory tract infection [Unknown]
  - Mycobacterium avium complex infection [Unknown]
  - COVID-19 [Recovered/Resolved]

NARRATIVE: CASE EVENT DATE: 20221109
